FAERS Safety Report 8985935 (Version 1)
Quarter: 2012Q4

REPORT INFORMATION
  Report Type: 
  Country: CA (occurrence: CA)
  Receive Date: 20121226
  Receipt Date: 20121226
  Transmission Date: 20130627
  Serious: Yes (Hospitalization)
  Sender: FDA-Public Use
  Company Number: CA-B.I. PHARMACEUTICALS,INC./RIDGEFIELD-2012-CN-02624CN

PATIENT
  Age: 49 Year
  Sex: Female

DRUGS (17)
  1. PRADAX [Suspect]
     Route: 058
  2. REBIF [Suspect]
     Dosage: 50 RT
     Route: 058
  3. REBIF [Suspect]
     Dosage: 20 RT
     Route: 058
  4. REBIF [Suspect]
     Dosage: 44 mcg
     Route: 058
  5. REBIF [Suspect]
     Route: 065
  6. ADVAIR [Concomitant]
  7. AMANTADINE [Concomitant]
  8. BACLOFEN [Concomitant]
  9. CALCIUM + MAGNESIUM [Concomitant]
  10. CRESTOR [Concomitant]
  11. DETROL [Concomitant]
  12. MULTIVITAMINE(S) [Concomitant]
  13. NEURONTIN [Concomitant]
  14. SINEMET [Concomitant]
  15. SINGULAIR [Concomitant]
  16. VENTOLIN [Concomitant]
  17. VITAMIN D [Concomitant]

REACTIONS (23)
  - Abdominal pain lower [Not Recovered/Not Resolved]
  - Back pain [Not Recovered/Not Resolved]
  - Chills [Not Recovered/Not Resolved]
  - Faeces discoloured [Not Recovered/Not Resolved]
  - Fatigue [Not Recovered/Not Resolved]
  - Gait disturbance [Not Recovered/Not Resolved]
  - Headache [Not Recovered/Not Resolved]
  - Hot flush [Not Recovered/Not Resolved]
  - Hypoaesthesia [Not Recovered/Not Resolved]
  - Injection related reaction [Not Recovered/Not Resolved]
  - Intermittent claudication [Not Recovered/Not Resolved]
  - Jugular vein thrombosis [Not Recovered/Not Resolved]
  - Multiple sclerosis relapse [Not Recovered/Not Resolved]
  - Muscle spasms [Not Recovered/Not Resolved]
  - Muscular weakness [Not Recovered/Not Resolved]
  - Musculoskeletal pain [Not Recovered/Not Resolved]
  - Myalgia [Not Recovered/Not Resolved]
  - Pain in extremity [Not Recovered/Not Resolved]
  - Paraesthesia [Not Recovered/Not Resolved]
  - Rash macular [Not Recovered/Not Resolved]
  - Tremor [Not Recovered/Not Resolved]
  - Vascular skin disorder [Not Recovered/Not Resolved]
  - Venous insufficiency [Not Recovered/Not Resolved]
